FAERS Safety Report 25439269 (Version 1)
Quarter: 2025Q2

REPORT INFORMATION
  Report Type: Spontaneous
  Country: CA (occurrence: CA)
  Receive Date: 20250616
  Receipt Date: 20250616
  Transmission Date: 20250716
  Serious: Yes (Other)
  Sender: AMGEN
  Company Number: CA-AMGEN-CANSP2025115110

PATIENT

DRUGS (1)
  1. BEVACIZUMAB [Suspect]
     Active Substance: BEVACIZUMAB
     Indication: Radiation necrosis
     Dosage: 7.5 MILLIGRAM/KILOGRAM PER INFUSION, Q3WK
     Route: 065

REACTIONS (8)
  - Disease recurrence [Unknown]
  - Haemorrhage intracranial [Unknown]
  - Rash [Unknown]
  - Off label use [Unknown]
  - Arthralgia [Unknown]
  - Hypertension [Unknown]
  - Fatigue [Unknown]
  - Drug effective for unapproved indication [Unknown]
